FAERS Safety Report 19443220 (Version 3)
Quarter: 2022Q1

REPORT INFORMATION
  Report Type: Spontaneous
  Country: ES (occurrence: ES)
  Receive Date: 20210621
  Receipt Date: 20220114
  Transmission Date: 20220423
  Serious: Yes (Life-Threatening, Hospitalization, Other)
  Sender: FDA-Public Use
  Company Number: ES-MACLEODS PHARMA UK LTD-MAC2020028059

PATIENT
  Age: 32 Year
  Sex: Female

DRUGS (2)
  1. MOXIFLOXACIN [Suspect]
     Active Substance: MOXIFLOXACIN
     Indication: Atypical pneumonia
     Dosage: 400 MILLIGRAM, QD
     Route: 048
  2. PILOCARPINE [Concomitant]
     Active Substance: PILOCARPINE
     Indication: Iris transillumination defect
     Dosage: DILUTED TO 0.125%, AND TO A CONCENTRATION HIGHER THAN 2%
     Route: 065

REACTIONS (9)
  - Iris transillumination defect [Not Recovered/Not Resolved]
  - Acute respiratory distress syndrome [Unknown]
  - Pneumonia [Unknown]
  - Influenza B virus test positive [Unknown]
  - Conjunctival hyperaemia [Not Recovered/Not Resolved]
  - Miosis [Unknown]
  - Mydriasis [Not Recovered/Not Resolved]
  - Iridocyclitis [None]
  - Therapy non-responder [Unknown]
